FAERS Safety Report 8103196-3 (Version None)
Quarter: 2012Q1

REPORT INFORMATION
  Report Type: 
  Country: None (occurrence: None)
  Receive Date: 20120201
  Receipt Date: 20120124
  Transmission Date: 20120608
  Serious: Yes (Other)
  Sender: FDA-Public Use
  Company Number: US-JNJFOC-20120110690

PATIENT
  Sex: Female
  Weight: 109.77 kg

DRUGS (6)
  1. RANITIDINE [Concomitant]
     Indication: GASTRIC DISORDER
     Route: 048
  2. TOPAMAX [Suspect]
     Indication: PARTIAL SEIZURES
     Route: 048
     Dates: end: 20120124
  3. PRAVASTATIN [Concomitant]
     Indication: BLOOD CHOLESTEROL
     Route: 048
  4. COZAAR [Concomitant]
     Indication: BLOOD PRESSURE
     Route: 048
  5. TOPAMAX [Suspect]
     Route: 048
     Dates: start: 20120124
  6. PLAVIX [Concomitant]
     Indication: BLOOD CHOLESTEROL
     Route: 048

REACTIONS (8)
  - MENTAL DISORDER [None]
  - ANXIETY [None]
  - WRONG TECHNIQUE IN DRUG USAGE PROCESS [None]
  - ARRHYTHMIA [None]
  - HYPERSENSITIVITY [None]
  - PANIC ATTACK [None]
  - THERAPEUTIC RESPONSE INCREASED [None]
  - CARDIAC FAILURE CONGESTIVE [None]
